FAERS Safety Report 4465167-8 (Version None)
Quarter: 2004Q3

REPORT INFORMATION
  Report Type: 
  Country: None (occurrence: None)
  Receive Date: 20040928
  Receipt Date: 20040928
  Transmission Date: 20050211
  Serious: Yes (Death)
  Sender: FDA-Public Use
  Company Number: None

PATIENT
  Age: 87 Year
  Sex: Male
  Weight: 120.2032 kg

DRUGS (1)
  1. THORAZINE [Suspect]
     Dosage: 25 MG PO BID [ ? NURSING HOME PT]
     Route: 048

REACTIONS (3)
  - BRADYCARDIA [None]
  - HYPOTENSION [None]
  - HYPOTHERMIA [None]
